FAERS Safety Report 10925353 (Version 6)
Quarter: 2015Q2

REPORT INFORMATION
  Report Type: Spontaneous
  Country: US (occurrence: US)
  Receive Date: 20150318
  Receipt Date: 20150629
  Transmission Date: 20150821
  Serious: Yes (Other)
  Sender: FDA-Public Use
  Company Number: US-PFIZER INC-2015092876

PATIENT
  Age: 57 Year
  Sex: Female

DRUGS (3)
  1. SUTENT [Suspect]
     Active Substance: SUNITINIB MALATE
     Indication: METASTATIC RENAL CELL CARCINOMA
     Dosage: 50 MG, 28 DAYS ON, 14 DAYS OFF
     Route: 048
  2. TRAZODONE [Concomitant]
     Active Substance: TRAZODONE HYDROCHLORIDE
     Dosage: UNK
  3. SUTENT [Suspect]
     Active Substance: SUNITINIB MALATE
     Dosage: 25 MG, CYCLIC (DAILY 28 DAYS ON, 14 DAYS OFF)
     Route: 048
     Dates: start: 20150318, end: 20150601

REACTIONS (43)
  - Chromaturia [Unknown]
  - Constipation [Unknown]
  - Palpitations [Unknown]
  - Insomnia [Unknown]
  - Skin disorder [Unknown]
  - Eructation [Unknown]
  - Swelling face [Not Recovered/Not Resolved]
  - Medication error [Unknown]
  - Chills [Not Recovered/Not Resolved]
  - Dysgeusia [Unknown]
  - Palmar-plantar erythrodysaesthesia syndrome [Unknown]
  - Lymphadenopathy [Unknown]
  - Hypertension [Not Recovered/Not Resolved]
  - Blood pressure fluctuation [Unknown]
  - Oral discomfort [Unknown]
  - Eye oedema [Unknown]
  - Tongue blistering [Unknown]
  - Dry mouth [Unknown]
  - Eyelash discolouration [Unknown]
  - Night sweats [Unknown]
  - Yellow skin [Not Recovered/Not Resolved]
  - Nausea [Unknown]
  - Abdominal pain [Unknown]
  - Disease progression [Unknown]
  - Swollen tongue [Unknown]
  - Epistaxis [Unknown]
  - Vomiting [Unknown]
  - Headache [Unknown]
  - Muscle spasms [Unknown]
  - Restless legs syndrome [Unknown]
  - Abdominal discomfort [Unknown]
  - Coating in mouth [Unknown]
  - Madarosis [Unknown]
  - Dyspepsia [Unknown]
  - Blister [Unknown]
  - Early satiety [Unknown]
  - Pyrexia [Not Recovered/Not Resolved]
  - Thrombosis [Unknown]
  - Diarrhoea [Not Recovered/Not Resolved]
  - Tooth discolouration [Unknown]
  - Skin exfoliation [Not Recovered/Not Resolved]
  - Hair colour changes [Unknown]
  - Metastatic renal cell carcinoma [Unknown]
